FAERS Safety Report 8463172-8 (Version None)
Quarter: 2012Q2

REPORT INFORMATION
  Report Type: 
  Country: None (occurrence: None)
  Receive Date: 20120625
  Receipt Date: 20120619
  Transmission Date: 20120825
  Serious: No
  Sender: FDA-Public Use
  Company Number: US-PFIZER INC-2012147416

PATIENT
  Sex: Female

DRUGS (2)
  1. REVATIO [Suspect]
  2. LETAIRIS [Suspect]
     Indication: PULMONARY HYPERTENSION
     Dosage: 10 MG, UNK
     Route: 048
     Dates: start: 20110421

REACTIONS (4)
  - DECREASED APPETITE [None]
  - UNEVALUABLE EVENT [None]
  - FATIGUE [None]
  - ABDOMINAL DISCOMFORT [None]
